FAERS Safety Report 9420964 (Version 1)
Quarter: 2013Q3

REPORT INFORMATION
  Report Type: Spontaneous
  Country: US (occurrence: US)
  Receive Date: 20130725
  Receipt Date: 20130725
  Transmission Date: 20140515
  Serious: No
  Sender: FDA-Public Use
  Company Number: US-ABBOTT-13P-163-1108187-00

PATIENT
  Age: 66 Year
  Sex: Female
  Weight: 83.99 kg

DRUGS (3)
  1. SYNTHROID [Suspect]
     Indication: HYPOTHYROIDISM
     Dates: start: 200908
  2. SYNTHROID [Suspect]
  3. PREDNISONE [Concomitant]
     Indication: ASTHMA
     Dates: start: 201303, end: 201303

REACTIONS (6)
  - Blood glucose increased [Unknown]
  - Glucose tolerance impaired [Unknown]
  - Lipids increased [Unknown]
  - Bone density decreased [Unknown]
  - Weight loss poor [Unknown]
  - Lipids increased [Unknown]
